FAERS Safety Report 19689361 (Version 1)
Quarter: 2021Q3

REPORT INFORMATION
  Report Type: Spontaneous
  Country: DE (occurrence: DE)
  Receive Date: 20210812
  Receipt Date: 20210812
  Transmission Date: 20211014
  Serious: Yes (Other)
  Sender: FDA-Public Use
  Company Number: DE-LUPIN PHARMACEUTICALS INC.-2021-14334

PATIENT
  Age: 24 Year
  Sex: Male

DRUGS (1)
  1. TESTOSTERONE. [Suspect]
     Active Substance: TESTOSTERONE
     Indication: DRUG ABUSE
     Dosage: UNK (INJECTION)
     Route: 065

REACTIONS (2)
  - Porphyria acute [Recovered/Resolved with Sequelae]
  - Drug abuse [Unknown]
